FAERS Safety Report 25520670 (Version 1)
Quarter: 2025Q3

REPORT INFORMATION
  Report Type: Spontaneous
  Country: US (occurrence: US)
  Receive Date: 20250705
  Receipt Date: 20250705
  Transmission Date: 20251020
  Serious: No
  Sender: SANOFI AVENTIS
  Company Number: US-SANOFI-02577631

PATIENT
  Sex: Female

DRUGS (10)
  1. DUPIXENT [Suspect]
     Active Substance: DUPILUMAB
     Indication: Nasal polyps
     Dosage: 300 MG, QOW
     Route: 058
  2. ALLEGRA [Concomitant]
     Active Substance: FEXOFENADINE HYDROCHLORIDE
  3. CEPHALEXIN [Concomitant]
     Active Substance: CEPHALEXIN
  4. FASENRA [Concomitant]
     Active Substance: BENRALIZUMAB
  5. FLOVENT [Concomitant]
     Active Substance: FLUTICASONE PROPIONATE
  6. GLATIRAMER ACETATE [Concomitant]
     Active Substance: GLATIRAMER ACETATE
  7. IBUPROFEN [Concomitant]
     Active Substance: IBUPROFEN
  8. MOMETASONE [Concomitant]
     Active Substance: MOMETASONE
  9. MONTELUKAST SODIUM [Concomitant]
     Active Substance: MONTELUKAST SODIUM
  10. PREDNISONE [Concomitant]
     Active Substance: PREDNISONE

REACTIONS (1)
  - Cellulitis [Unknown]
